FAERS Safety Report 12555821 (Version 5)
Quarter: 2017Q2

REPORT INFORMATION
  Report Type: Report from Study
  Country: US (occurrence: US)
  Receive Date: 20160714
  Receipt Date: 20170602
  Transmission Date: 20170830
  Serious: Yes (Hospitalization, Other)
  Sender: FDA-Public Use
  Company Number: PHEH2016US017384

PATIENT
  Age: 74 Year
  Sex: Female

DRUGS (1)
  1. GLEEVEC [Suspect]
     Active Substance: IMATINIB MESYLATE
     Indication: PRODUCT USED FOR UNKNOWN INDICATION
     Dosage: 400 MG, UNK
     Route: 048

REACTIONS (9)
  - Pneumonia [Recovering/Resolving]
  - Fall [Unknown]
  - Spinal fracture [Unknown]
  - Type 2 diabetes mellitus [Unknown]
  - Barrett^s oesophagus [Unknown]
  - Muscular weakness [Unknown]
  - Back pain [Unknown]
  - Leukaemia [Unknown]
  - Arthritis [Unknown]

NARRATIVE: CASE EVENT DATE: 20170502
